FAERS Safety Report 6310846-0 (Version None)
Quarter: 2009Q3

REPORT INFORMATION
  Report Type: 
  Country: None (occurrence: None)
  Receive Date: 20090812
  Receipt Date: 20090722
  Transmission Date: 20100115
  Serious: Yes (Other)
  Sender: FDA-Public Use
  Company Number: JPI-P-003320

PATIENT
  Age: 30 Year
  Sex: Female
  Weight: 55.7924 kg

DRUGS (13)
  1. XYREM [Suspect]
     Indication: NARCOLEPSY
     Dosage: 4.5 GM (2.25 GM, 2 IN 1 D), ORAL; 6 GM (3 GM, 2 IN 1 D), ORAL
     Route: 048
     Dates: start: 20071127
  2. XYREM [Suspect]
     Indication: NARCOLEPSY
     Dosage: 4.5 GM (2.25 GM, 2 IN 1 D), ORAL; 6 GM (3 GM, 2 IN 1 D), ORAL
     Route: 048
     Dates: start: 20090101
  3. ALCOHOL [Suspect]
     Indication: ALCOHOL USE
  4. HYDROCHLOROTHIAZIDE [Concomitant]
  5. ESCITALOPRAM OXALATE [Concomitant]
  6. ARMODAFINIL (PILL) [Concomitant]
  7. FLUOXETINE [Concomitant]
  8. LORAZEPAM (PILL) [Concomitant]
  9. FEXOFENADINE HCL [Concomitant]
  10. HYDROCODONE APAP (PILL) [Concomitant]
  11. DIPHENOXYLATE / ATROPINE (TABLETS) [Concomitant]
  12. MOMETASONE (SPRAY (NOT INHALATION)) [Concomitant]
  13. INFLIXIMAB (INJECTION) [Concomitant]

REACTIONS (2)
  - INFECTIOUS MONONUCLEOSIS [None]
  - LOSS OF CONSCIOUSNESS [None]
